FAERS Safety Report 16032482 (Version 1)
Quarter: 2019Q1

REPORT INFORMATION
  Report Type: Spontaneous
  Country: US (occurrence: US)
  Receive Date: 20190304
  Receipt Date: 20190304
  Transmission Date: 20190418
  Serious: No
  Sender: FDA-Public Use
  Company Number: US-CELGENEUS-USA-20190207547

PATIENT
  Sex: Female
  Weight: 55 kg

DRUGS (3)
  1. THALOMID [Suspect]
     Active Substance: THALIDOMIDE
     Indication: PRURITUS
     Dosage: 100 MILLIGRAM
     Route: 048
     Dates: start: 201806
  2. THALOMID [Suspect]
     Active Substance: THALIDOMIDE
     Indication: OFF LABEL USE
     Dosage: 50 MILLIGRAM
     Route: 048
     Dates: start: 201806
  3. THALOMID [Suspect]
     Active Substance: THALIDOMIDE
     Indication: URTICARIA
     Dosage: 50 MILLIGRAM
     Route: 048
     Dates: start: 201803

REACTIONS (7)
  - Hypoaesthesia [Not Recovered/Not Resolved]
  - Slow speech [Not Recovered/Not Resolved]
  - Back pain [Not Recovered/Not Resolved]
  - Constipation [Not Recovered/Not Resolved]
  - Fatigue [Not Recovered/Not Resolved]
  - Adverse reaction [Unknown]
  - Confusional state [Not Recovered/Not Resolved]
